FAERS Safety Report 17448304 (Version 1)
Quarter: 2020Q1

REPORT INFORMATION
  Report Type: Spontaneous
  Country: US (occurrence: US)
  Receive Date: 20200223
  Receipt Date: 20200223
  Transmission Date: 20200409
  Serious: Yes (Other)
  Sender: FDA-Public Use
  Company Number: US-AMGEN-USASP2020028978

PATIENT
  Age: 67 Year
  Sex: Female
  Weight: 66 kg

DRUGS (1)
  1. ENBREL [Suspect]
     Active Substance: ETANERCEPT
     Indication: RHEUMATOID ARTHRITIS
     Dosage: UNK, QWK  (ONCE WEEKLY ON FRIDAY/ONCE A WEEK FOR 6 MONTHS)
     Route: 030

REACTIONS (3)
  - Arthritis [Unknown]
  - Malaise [Unknown]
  - Blood urine present [Recovered/Resolved]
